FAERS Safety Report 19964505 (Version 1)
Quarter: 2021Q4

REPORT INFORMATION
  Report Type: Spontaneous
  Country: ES (occurrence: ES)
  Receive Date: 20211018
  Receipt Date: 20211018
  Transmission Date: 20220303
  Serious: Yes (Death, Other)
  Sender: FDA-Public Use
  Company Number: ES-BOEHRINGERINGELHEIM-2021-BI-132791

PATIENT
  Age: 45 Year
  Sex: Male

DRUGS (1)
  1. PRADAXA [Suspect]
     Active Substance: DABIGATRAN ETEXILATE MESYLATE
     Indication: Anticoagulant therapy

REACTIONS (6)
  - Death [Fatal]
  - Cerebrovascular accident [Unknown]
  - Deep vein thrombosis [Unknown]
  - Intracardiac thrombus [Unknown]
  - Pulmonary embolism [Unknown]
  - Cardio-respiratory arrest [Unknown]
